FAERS Safety Report 6253791-1 (Version None)
Quarter: 2009Q3

REPORT INFORMATION
  Report Type: 
  Country: None (occurrence: None)
  Receive Date: 20090702
  Receipt Date: 20090626
  Transmission Date: 20100115
  Serious: Yes (Other)
  Sender: FDA-Public Use
  Company Number: US-JNJCH-2009017566

PATIENT
  Age: 1 Year
  Sex: Female

DRUGS (1)
  1. DRAMAMINE [Suspect]
     Indication: ACCIDENTAL EXPOSURE
     Dosage: TEXT:UNSPECIFIED ONE TIME
     Route: 048
     Dates: start: 20090625, end: 20090625

REACTIONS (2)
  - ACCIDENTAL DRUG INTAKE BY CHILD [None]
  - HEART RATE INCREASED [None]
